FAERS Safety Report 18842462 (Version 1)
Quarter: 2021Q1

REPORT INFORMATION
  Report Type: Other
  Country: AR (occurrence: AR)
  Receive Date: 20210204
  Receipt Date: 20210204
  Transmission Date: 20210419
  Serious: Yes (Hospitalization, Other)
  Sender: FDA-Public Use
  Company Number: AR-ROCHE-2709912

PATIENT
  Age: 72 Year
  Sex: Male

DRUGS (2)
  1. XOLAIR [Suspect]
     Active Substance: OMALIZUMAB
     Route: 065
  2. XOLAIR [Suspect]
     Active Substance: OMALIZUMAB
     Indication: ASTHMA
     Route: 058
     Dates: start: 20160824, end: 202003

REACTIONS (12)
  - Myocardial infarction [Not Recovered/Not Resolved]
  - Rhinitis allergic [Not Recovered/Not Resolved]
  - Asthma [Unknown]
  - Areflexia [Not Recovered/Not Resolved]
  - Haemorrhage [Unknown]
  - Hypotension [Not Recovered/Not Resolved]
  - Polyp [Not Recovered/Not Resolved]
  - Nasal congestion [Unknown]
  - Product dose omission issue [Unknown]
  - Ear disorder [Not Recovered/Not Resolved]
  - Hypersensitivity [Unknown]
  - Arterial occlusive disease [Not Recovered/Not Resolved]

NARRATIVE: CASE EVENT DATE: 20190702
